FAERS Safety Report 10410284 (Version 1)
Quarter: 2014Q2

REPORT INFORMATION
  Report Type: Spontaneous
  Country: US (occurrence: None)
  Receive Date: 20140530
  Receipt Date: 20140530
  Transmission Date: 20141212
  Serious: No
  Sender: FDA-Public Use
  Company Number: 226215

PATIENT
  Sex: Male

DRUGS (1)
  1. PICATO [Suspect]
     Indication: ACTINIC KERATOSIS
     Dosage: 2 TABLETS PER DAY (1 DAY)
     Dates: start: 20140201

REACTIONS (5)
  - Drug administration error [None]
  - Drug administered at inappropriate site [None]
  - Drug dose omission [None]
  - Inappropriate schedule of drug administration [None]
  - Product quality issue [None]
